FAERS Safety Report 7280362-0 (Version None)
Quarter: 2011Q1

REPORT INFORMATION
  Report Type: 
  Country: None (occurrence: None)
  Receive Date: 20110208
  Receipt Date: 20110127
  Transmission Date: 20110831
  Serious: Yes (Hospitalization, Other)
  Sender: FDA-Public Use
  Company Number: US-ELI_LILLY_AND_COMPANY-US201101006987

PATIENT
  Sex: Female

DRUGS (24)
  1. CENTRUM SILVER [Concomitant]
     Dosage: UNK, DAILY (1/D)
  2. CLARINEX [Concomitant]
     Dosage: 5 MG, DAILY (1/D)
  3. AMITIZA [Concomitant]
     Dosage: UNK, DAILY (1/D)
  4. PANTOTHENIC ACID [Concomitant]
     Dosage: 500 MG, UNK
  5. FORTEO [Suspect]
     Indication: OSTEOPOROSIS
     Dosage: 20 UG, DAILY (1/D)
     Dates: start: 20101015
  6. FAODILE [Concomitant]
     Dosage: 12 UG, UNK
  7. GARLIC [Concomitant]
  8. PARSLEY [Concomitant]
  9. GLUCOSAMINE + CHONDROITIN [Concomitant]
  10. MUCINEX [Concomitant]
     Dosage: 600 MG, 2/D
  11. XOPENEX [Concomitant]
     Dosage: UNK, 4/D
  12. BIOTIN [Concomitant]
     Dosage: 600 UG, DAILY (1/D)
  13. CALCIUM CITRATE [Concomitant]
     Dosage: 1140 MG, DAILY (1/D)
  14. MAGNESIUM W/POTASSIUM [Concomitant]
     Dosage: 500 MG, UNK
  15. PREVACID [Concomitant]
     Dosage: UNK, DAILY (1/D)
  16. ASCORBIC ACID [Concomitant]
     Dosage: 500 MG, UNK
  17. VOLTAREN /SCH/ [Concomitant]
     Dosage: 50 MG, UNK
  18. XOLAIR [Concomitant]
     Dosage: UNK, MONTHLY (1/M)
  19. AMITRIP [Concomitant]
     Dosage: UNK, DAILY (1/D)
  20. FISH OIL [Concomitant]
     Dosage: 1200 MG, DAILY (1/D)
  21. VITAMIN D [Concomitant]
     Dosage: 31700 IU, UNK
  22. PULMICORT [Concomitant]
  23. SINGULAIR [Concomitant]
     Dosage: 10 MG, UNK
  24. PHENERGAN HCL [Concomitant]
     Indication: NAUSEA
     Dosage: UNK, AS NEEDED

REACTIONS (3)
  - SPINAL NERVE STIMULATOR IMPLANTATION [None]
  - HOT FLUSH [None]
  - NIGHT SWEATS [None]
